FAERS Safety Report 13665902 (Version 5)
Quarter: 2017Q4

REPORT INFORMATION
  Report Type: Report from Study
  Country: US (occurrence: BR)
  Receive Date: 20170619
  Receipt Date: 20171019
  Transmission Date: 20180320
  Serious: Yes (Life-Threatening, Other)
  Sender: FDA-Public Use
  Company Number: US-SUNOVION-2017SUN002613

PATIENT
  Sex: Female
  Weight: 70 kg

DRUGS (7)
  1. MAGNESIUM CHLORIDE. [Concomitant]
     Active Substance: MAGNESIUM CHLORIDE
     Dosage: 625 MG, UNK
  2. INDACATEROL AND GLYCOPYRROLATE [Suspect]
     Active Substance: GLYCOPYRROLATE\INDACATEROL MALEATE
     Indication: EMPHYSEMA
     Dosage: 1 (110/50 UG;), QD
     Route: 055
     Dates: start: 20170201
  3. CALCITRANS [Concomitant]
     Active Substance: CALCIUM GLUCONATE
     Dosage: 20 MG, UNK
  4. INDACATEROL AND GLYCOPYRROLATE [Suspect]
     Active Substance: GLYCOPYRROLATE\INDACATEROL MALEATE
     Indication: CHRONIC OBSTRUCTIVE PULMONARY DISEASE
     Dosage: 2 (110/50 UG), QD
     Route: 055
  5. LOTAR [Concomitant]
     Active Substance: AMLODIPINE\LOSARTAN
     Dosage: 5/50 MG
  6. OMEPRAZOLE. [Concomitant]
     Active Substance: OMEPRAZOLE
     Dosage: 20 MG, UNK
  7. SOMALGIN [Concomitant]
     Active Substance: ASPIRIN\DIHYDROXYALUMINUM AMINOACETATE ANHYDROUS\MAGNESIUM CARBONATE
     Indication: THROMBOSIS
     Dosage: 30 MG, UNK

REACTIONS (8)
  - Viral upper respiratory tract infection [Unknown]
  - Gastritis [Not Recovered/Not Resolved]
  - Dyspnoea [Recovering/Resolving]
  - Gastrointestinal bacterial infection [Recovered/Resolved]
  - Cough [Unknown]
  - Feeling abnormal [Unknown]
  - Inappropriate schedule of drug administration [Unknown]
  - Weight increased [Recovered/Resolved]
